FAERS Safety Report 8197592-6 (Version None)
Quarter: 2012Q1

REPORT INFORMATION
  Report Type: 
  Country: None (occurrence: None)
  Receive Date: 20120309
  Receipt Date: 20120224
  Transmission Date: 20120608
  Serious: Yes (Hospitalization)
  Sender: FDA-Public Use
  Company Number: JP-ROCHE-1037975

PATIENT
  Sex: Male
  Weight: 49 kg

DRUGS (8)
  1. URSO 250 [Concomitant]
     Indication: LIVER DISORDER
     Route: 048
     Dates: start: 20110512
  2. LAC-B [Concomitant]
     Indication: CONSTIPATION
     Route: 048
     Dates: start: 20110512
  3. GOODMIN [Concomitant]
     Indication: INSOMNIA
     Route: 048
     Dates: start: 20111122
  4. METHYCOBAL [Concomitant]
     Indication: NEUROPATHY PERIPHERAL
     Route: 048
     Dates: start: 20120112
  5. GOSHA-JINKI-GAN [Concomitant]
     Indication: NEUROPATHY PERIPHERAL
     Route: 048
     Dates: start: 20110524
  6. XELODA [Suspect]
     Indication: COLON CANCER
     Dosage: DOSAGE IS UNCERTAIN. XELODA 300
     Route: 048
     Dates: start: 20111202, end: 20120202
  7. RABEPRAZOLE SODIUM [Concomitant]
     Indication: GASTROOESOPHAGEAL REFLUX DISEASE
     Route: 048
     Dates: start: 20110512
  8. MAGNESIUM OXIDE [Concomitant]
     Indication: CONSTIPATION
     Route: 048
     Dates: start: 20110727

REACTIONS (1)
  - INTERSTITIAL LUNG DISEASE [None]
